FAERS Safety Report 6464750-8 (Version None)
Quarter: 2009Q4

REPORT INFORMATION
  Report Type: 
  Country: None (occurrence: None)
  Receive Date: 20091124
  Receipt Date: 20091113
  Transmission Date: 20100525
  Serious: Yes (Other)
  Sender: FDA-Public Use
  Company Number: 233090J09USA

PATIENT
  Age: 25 Year
  Sex: Female
  Weight: 104 kg

DRUGS (2)
  1. REBIF [Suspect]
     Indication: MULTIPLE SCLEROSIS
     Dosage: 44 MCG, 3 IN 1 WEEKS, SUBCUTANEOUS
     Route: 058
     Dates: start: 20090701, end: 20091023
  2. SERTRALINE HCL [Concomitant]

REACTIONS (4)
  - BALANCE DISORDER [None]
  - DRUG EXPOSURE DURING PREGNANCY [None]
  - OPTIC NEURITIS [None]
  - PREGNANCY [None]
